FAERS Safety Report 10869825 (Version 1)
Quarter: 2015Q1

REPORT INFORMATION
  Report Type: Spontaneous
  Country: US (occurrence: None)
  Receive Date: 20150223
  Receipt Date: 20150223
  Transmission Date: 20150721
  Serious: Yes (Other)
  Sender: FDA-Public Use
  Company Number: NSR_01966_2015

PATIENT
  Age: 55 Year
  Sex: Male

DRUGS (1)
  1. GEMFIBROZIL. [Suspect]
     Active Substance: GEMFIBROZIL
     Indication: HYPERTRIGLYCERIDAEMIA

REACTIONS (10)
  - Hepatic steatosis [None]
  - Liver injury [None]
  - Pruritus [None]
  - Portal tract inflammation [None]
  - Hepatitis [None]
  - Cholelithiasis [None]
  - Hepatic fibrosis [None]
  - Abdominal pain [None]
  - Fatigue [None]
  - Cholestasis [None]
